FAERS Safety Report 11910105 (Version 4)
Quarter: 2018Q4

REPORT INFORMATION
  Report Type: Spontaneous
  Country: US (occurrence: US)
  Receive Date: 20160112
  Receipt Date: 20181217
  Transmission Date: 20190204
  Serious: No
  Sender: FDA-Public Use
  Company Number: US-PFIZER INC-2015465501

PATIENT
  Age: 53 Year
  Sex: Male
  Weight: 127.1 kg

DRUGS (5)
  1. LYRICA [Suspect]
     Active Substance: PREGABALIN
     Indication: NEURITIS
  2. LYRICA [Suspect]
     Active Substance: PREGABALIN
     Indication: NEURALGIA
  3. TRAMADOL. [Concomitant]
     Active Substance: TRAMADOL
     Indication: NEUROPATHY PERIPHERAL
     Dosage: 50MG PILL, THREE TIMES A DAY BY MOUTH
     Route: 048
     Dates: start: 2010
  4. INSULIN [Concomitant]
     Active Substance: INSULIN NOS
     Indication: DIABETES MELLITUS
     Dosage: UNK
  5. LYRICA [Suspect]
     Active Substance: PREGABALIN
     Indication: NEUROPATHY PERIPHERAL
     Dosage: 300MG CAPSULE, THREE TIMES A DAY BY MOUTH (TID)
     Route: 048
     Dates: start: 2010

REACTIONS (4)
  - Pain [Unknown]
  - Fatigue [Unknown]
  - Nerve injury [Unknown]
  - Prescribed overdose [Unknown]
